FAERS Safety Report 18465636 (Version 1)
Quarter: 2020Q4

REPORT INFORMATION
  Report Type: Spontaneous
  Country: US (occurrence: US)
  Receive Date: 20201104
  Receipt Date: 20201104
  Transmission Date: 20210114
  Serious: Yes (Hospitalization, Other)
  Sender: FDA-Public Use
  Company Number: US-NAPPMUNDI-USA-2020-0155559

PATIENT
  Sex: Female

DRUGS (3)
  1. HEROIN [Suspect]
     Active Substance: DIAMORPHINE
     Indication: DEPENDENCE
     Dosage: UNK
     Route: 065
     Dates: end: 201706
  2. FENTANYL. [Suspect]
     Active Substance: FENTANYL
     Indication: DEPENDENCE
     Dosage: UNK
     Route: 048
     Dates: end: 201706
  3. OXYCONTIN [Suspect]
     Active Substance: OXYCODONE HYDROCHLORIDE
     Indication: PAIN
     Dosage: UNK
     Route: 048
     Dates: start: 200601, end: 201706

REACTIONS (4)
  - Impaired work ability [Unknown]
  - Substance abuse [Recovering/Resolving]
  - Overdose [Recovered/Resolved]
  - Substance dependence [Recovering/Resolving]

NARRATIVE: CASE EVENT DATE: 201705
